FAERS Safety Report 8724861 (Version 7)
Quarter: 2013Q2

REPORT INFORMATION
  Report Type: Spontaneous
  Country: US (occurrence: US)
  Receive Date: 20120815
  Receipt Date: 20130418
  Transmission Date: 20140414
  Serious: Yes (Hospitalization, Other)
  Sender: FDA-Public Use
  Company Number: US-GILEAD-2012-0059620

PATIENT
  Age: 52 Year
  Sex: Female

DRUGS (3)
  1. LETAIRIS [Suspect]
     Indication: PULMONARY HYPERTENSION
     Dosage: 10 MG, UNK
     Route: 048
     Dates: start: 20070803
  2. TYVASO [Concomitant]
  3. ADCIRCA [Concomitant]

REACTIONS (13)
  - Pulmonary arterial hypertension [Unknown]
  - Haemorrhage [Unknown]
  - Renal disorder [Unknown]
  - Anaemia [Unknown]
  - Dyspnoea [Unknown]
  - Malaise [Unknown]
  - Dehydration [Unknown]
  - Renal failure [Unknown]
  - Scleroderma [Unknown]
  - Chronic obstructive pulmonary disease [Unknown]
  - Pneumonia [Unknown]
  - Fibrosis [Unknown]
  - Asthenia [Unknown]
